FAERS Safety Report 9631499 (Version 2)
Quarter: 2013Q4

REPORT INFORMATION
  Report Type: Spontaneous
  Country: CA (occurrence: None)
  Receive Date: 20131007
  Receipt Date: 20131010
  Transmission Date: 20140711
  Serious: Yes (Other)
  Sender: FDA-Public Use
  Company Number: 2013038254

PATIENT
  Age: 62 Year
  Sex: Female

DRUGS (1)
  1. PRIVIGEN (IMMUNE GLOBULIN INTRAVENOUS (HUMAN) 10% LIQUID [Suspect]
     Indication: SECONDARY IMMUNODEFICIENCY
     Dosage: 20 G TOTAL
     Route: 042
     Dates: start: 20130921, end: 20130921

REACTIONS (7)
  - Bronchopulmonary aspergillosis [None]
  - Sinus tachycardia [None]
  - Pneumonia bacterial [None]
  - Febrile nonhaemolytic transfusion reaction [None]
  - Tremor [None]
  - Musculoskeletal chest pain [None]
  - Tachycardia [None]
